FAERS Safety Report 20874260 (Version 3)
Quarter: 2022Q3

REPORT INFORMATION
  Report Type: Spontaneous
  Country: DE (occurrence: DE)
  Receive Date: 20220525
  Receipt Date: 20220901
  Transmission Date: 20221027
  Serious: Yes (Other)
  Sender: FDA-Public Use
  Company Number: DE-Hikma Pharmaceuticals-DE-H14001-22-01219

PATIENT
  Age: 46 Year
  Sex: Female
  Weight: 52.3 kg

DRUGS (10)
  1. OXALIPLATIN [Suspect]
     Active Substance: OXALIPLATIN
     Indication: Gastric cancer
     Dosage: 140 MILLIGRAM, BIWEEKLY (2 WEEK)  (START DATE-10-MAY-2022)
     Route: 042
  2. OXALIPLATIN [Suspect]
     Active Substance: OXALIPLATIN
     Dosage: 140 MILLIGRAM, BIWEEKLY (2 WEEK)
     Route: 042
     Dates: start: 20220412, end: 20220426
  3. DOCETAXEL [Suspect]
     Active Substance: DOCETAXEL
     Indication: Gastric cancer
     Dosage: 82 MILLIGRAM, BIWEEKLY (2 WEEK) (START DATE-10-MAY-2022)
     Route: 042
  4. DOCETAXEL [Suspect]
     Active Substance: DOCETAXEL
     Dosage: 82 MILLIGRAM, BIWEEKLY (2 WEEK)
     Route: 042
     Dates: start: 20220412, end: 20220426
  5. FLUOROURACIL [Suspect]
     Active Substance: FLUOROURACIL
     Indication: Chemotherapy
     Dosage: UNK
     Route: 065
  6. FLUOROURACIL [Suspect]
     Active Substance: FLUOROURACIL
     Dosage: UNKNOWN
     Route: 065
     Dates: start: 20220412, end: 20220426
  7. FLUOROURACIL [Suspect]
     Active Substance: FLUOROURACIL
     Dosage: UNKNOWN (BIWEEKLY) (START DATE-10-MAY-2022)
     Route: 065
  8. LEUCOVORIN [Suspect]
     Active Substance: LEUCOVORIN
     Indication: Chemotherapy
     Dosage: UNK
     Route: 065
  9. LEUCOVORIN [Suspect]
     Active Substance: LEUCOVORIN
     Dosage: UNK
     Route: 065
     Dates: start: 20220412, end: 20220426
  10. LEUCOVORIN [Suspect]
     Active Substance: LEUCOVORIN
     Dosage: UNK, BIWEEKLY (START DATE-10-MAY-2022)
     Route: 065

REACTIONS (2)
  - Chills [Recovered/Resolved]
  - Pyrexia [Recovered/Resolved]

NARRATIVE: CASE EVENT DATE: 20220426
